FAERS Safety Report 7983792-4 (Version None)
Quarter: 2011Q4

REPORT INFORMATION
  Report Type: 
  Country: None (occurrence: None)
  Receive Date: 20111215
  Receipt Date: 20111206
  Transmission Date: 20120403
  Serious: Yes (Other)
  Sender: FDA-Public Use
  Company Number: FR-ALVOGEN-2011AL000102

PATIENT
  Age: 76 Year
  Sex: Female
  Weight: 55 kg

DRUGS (3)
  1. UVEDOSE [Concomitant]
     Indication: PRODUCT USED FOR UNKNOWN INDICATION
     Dosage: 100000 IU
     Route: 048
  2. FURADANTIN [Suspect]
     Indication: CYSTITIS
     Dosage: 3 DF (1 DF, 3 IN 1 D)
     Route: 048
     Dates: start: 20110908, end: 20110913
  3. ESTRADIOL VALERATE [Concomitant]
     Indication: PRODUCT USED FOR UNKNOWN INDICATION
     Route: 048

REACTIONS (3)
  - PURPURA [None]
  - PYREXIA [None]
  - MIXED LIVER INJURY [None]
